FAERS Safety Report 4575632-0 (Version None)
Quarter: 2005Q1

REPORT INFORMATION
  Report Type: 
  Country: None (occurrence: None)
  Receive Date: 20050209
  Receipt Date: 20050128
  Transmission Date: 20050727
  Serious: Yes (Other)
  Sender: FDA-Public Use
  Company Number: AU-GLAXOSMITHKLINE-B0369924A

PATIENT
  Age: 27 Year
  Sex: Female
  Weight: 49 kg

DRUGS (1)
  1. IMIGRAN [Suspect]
     Indication: MIGRAINE
     Route: 048
     Dates: start: 19970108, end: 19970109

REACTIONS (9)
  - ASTHENIA [None]
  - DEAFNESS [None]
  - FATIGUE [None]
  - HYPOAESTHESIA [None]
  - NAUSEA [None]
  - PARAESTHESIA [None]
  - TINNITUS [None]
  - TREMOR [None]
  - VOMITING [None]
